FAERS Safety Report 25806704 (Version 1)
Quarter: 2025Q3

REPORT INFORMATION
  Report Type: Spontaneous
  Country: KR (occurrence: KR)
  Receive Date: 20250916
  Receipt Date: 20250916
  Transmission Date: 20251020
  Serious: Yes (Life-Threatening, Hospitalization)
  Sender: MYLAN
  Company Number: KR-MYLANLABS-2025M1077857

PATIENT
  Age: 23 Year
  Sex: Male

DRUGS (7)
  1. CLOZAPINE [Suspect]
     Active Substance: CLOZAPINE
     Indication: Schizophrenia
  2. QUETIAPINE [Suspect]
     Active Substance: QUETIAPINE
     Indication: Schizophrenia
  3. QUETIAPINE [Suspect]
     Active Substance: QUETIAPINE
  4. AMISULPRIDE [Suspect]
     Active Substance: AMISULPRIDE
     Indication: Schizophrenia
  5. AMISULPRIDE [Suspect]
     Active Substance: AMISULPRIDE
  6. ROPINIROLE [Concomitant]
     Active Substance: ROPINIROLE
     Indication: Schizophrenia
  7. BENZTROPINE [Concomitant]
     Active Substance: BENZTROPINE
     Indication: Schizophrenia

REACTIONS (6)
  - Diabetic ketoacidosis [Recovering/Resolving]
  - Neuroleptic malignant syndrome [Recovering/Resolving]
  - Respiratory failure [Recovering/Resolving]
  - Metabolic acidosis [Recovering/Resolving]
  - Rhabdomyolysis [Recovering/Resolving]
  - Autonomic nervous system imbalance [Recovering/Resolving]
